FAERS Safety Report 15254869 (Version 1)
Quarter: 2018Q3

REPORT INFORMATION
  Report Type: Spontaneous
  Country: JP (occurrence: JP)
  Receive Date: 20180808
  Receipt Date: 20180808
  Transmission Date: 20181010
  Serious: Yes (Hospitalization)
  Sender: FDA-Public Use
  Company Number: JP-ENDO PHARMACEUTICALS INC-2018-040363

PATIENT
  Age: 76 Year
  Sex: Female

DRUGS (2)
  1. PREDNISOLONE SODIUM PHOSPHATE ORAL SOLUTION 15MG/5ML [Suspect]
     Active Substance: PREDNISOLONE SODIUM PHOSPHATE
     Indication: COLITIS ULCERATIVE
     Dosage: 5 MG, DAILY
     Route: 048
  2. INFLIXIMAB [Suspect]
     Active Substance: INFLIXIMAB
     Indication: COLITIS ULCERATIVE
     Dosage: 200 MG, UNKNOWN (EVERY 8 WEEKS)
     Route: 065

REACTIONS (1)
  - Necrotising fasciitis [Recovered/Resolved]
